FAERS Safety Report 6646959-3 (Version None)
Quarter: 2010Q1

REPORT INFORMATION
  Report Type: 
  Country: None (occurrence: None)
  Receive Date: 20100323
  Receipt Date: 20100315
  Transmission Date: 20100710
  Serious: Yes (Death)
  Sender: FDA-Public Use
  Company Number: US-PFIZER INC-2010033799

PATIENT
  Age: 100 Year

DRUGS (4)
  1. LIPITOR [Suspect]
  2. PLAVIX [Suspect]
  3. ZYPREXA [Suspect]
  4. WARFARIN [Suspect]

REACTIONS (1)
  - DEATH [None]
